FAERS Safety Report 7015392-7 (Version None)
Quarter: 2010Q3

REPORT INFORMATION
  Report Type: 
  Country: None (occurrence: None)
  Receive Date: 20100922
  Receipt Date: 20100914
  Transmission Date: 20110219
  Serious: Yes (Other)
  Sender: FDA-Public Use
  Company Number: 2010MA002680

PATIENT
  Age: 90 Year
  Sex: Female

DRUGS (10)
  1. TRAMADOL HYDROCHLORIDE [Suspect]
     Indication: PELVIC FRACTURE
     Dosage: 50 MG;BID;PO
     Route: 048
     Dates: start: 20090505
  2. PREDNISOLONE [Concomitant]
  3. ALENDRONIC ACID [Concomitant]
  4. ACETYLSALICYLIC ACID SRT [Concomitant]
  5. SIMVASTATIN [Concomitant]
  6. RAMIPRIL [Concomitant]
  7. OMEPRAZOLE [Concomitant]
  8. CALCIUM AND VITAMIN D3 [Concomitant]
  9. ACETAMINOPHEN [Concomitant]
  10. PREV MEDS [Concomitant]

REACTIONS (1)
  - MYOCLONUS [None]
